FAERS Safety Report 15317122 (Version 2)
Quarter: 2018Q4

REPORT INFORMATION
  Report Type: Spontaneous
  Country: ES (occurrence: ES)
  Receive Date: 20180824
  Receipt Date: 20181227
  Transmission Date: 20190204
  Serious: Yes (Other)
  Sender: FDA-Public Use
  Company Number: ES-GILEAD-2018-0356634

PATIENT
  Age: 49 Year
  Sex: Female

DRUGS (9)
  1. IVERMECTIN. [Concomitant]
     Active Substance: IVERMECTIN
  2. RIFAMPICIN [Concomitant]
     Active Substance: RIFAMPIN
     Dosage: UNK
     Route: 065
     Dates: end: 20170822
  3. DOLUTEGRAVIR [Suspect]
     Active Substance: DOLUTEGRAVIR
     Indication: HIV INFECTION
     Dosage: 50 MG, BID
     Route: 065
     Dates: start: 20170626
  4. DOLUTEGRAVIR [Suspect]
     Active Substance: DOLUTEGRAVIR
     Dosage: 50 MG, QD
     Route: 065
     Dates: start: 201707
  5. TRIMETHOPRIM SULFAMETHOXAZOLE [Concomitant]
     Active Substance: SULFAMETHOXAZOLE\TRIMETHOPRIM
  6. PENTAMIDINE [Concomitant]
     Active Substance: PENTAMIDINE
  7. VALGANCICLOVIR. [Concomitant]
     Active Substance: VALGANCICLOVIR
  8. LEVOFLOXACIN. [Concomitant]
     Active Substance: LEVOFLOXACIN
  9. TRUVADA [Suspect]
     Active Substance: EMTRICITABINE\TENOFOVIR DISOPROXIL FUMARATE
     Indication: HIV INFECTION
     Dosage: UNK
     Route: 065
     Dates: start: 20170626

REACTIONS (2)
  - Gene mutation identification test positive [Unknown]
  - Virologic failure [Unknown]
